FAERS Safety Report 8540114-8 (Version None)
Quarter: 2012Q3

REPORT INFORMATION
  Report Type: 
  Country: None (occurrence: None)
  Receive Date: 20120726
  Receipt Date: 20120725
  Transmission Date: 20120928
  Serious: Yes (Life-Threatening, Hospitalization, Other)
  Sender: FDA-Public Use
  Company Number: PHHY2012JP031664

PATIENT
  Sex: Female

DRUGS (10)
  1. CLOZARIL [Suspect]
     Dosage: 75 MG
     Route: 048
     Dates: start: 20120404, end: 20120405
  2. FLOMAX [Concomitant]
     Dosage: 100 MG, TID
     Route: 048
     Dates: start: 20120409, end: 20120412
  3. ZYPREXA [Concomitant]
     Dosage: 20 MG
     Route: 048
     Dates: start: 20120428
  4. CLOZARIL [Suspect]
     Dosage: 100 MG
     Route: 048
     Dates: start: 20120406, end: 20120407
  5. ZYPREXA [Concomitant]
     Dosage: 5 MG
     Route: 048
     Dates: start: 20120404
  6. HOKUNALIN [Concomitant]
     Indication: ASTHMA
     Dosage: 2 MG
  7. CLOZARIL [Suspect]
     Dosage: 125 MG
     Route: 048
     Dates: start: 20120408, end: 20120412
  8. CLOZARIL [Suspect]
     Indication: SCHIZOPHRENIA
     Dosage: 12.5 MG DAILY
     Route: 048
     Dates: start: 20120328, end: 20120328
  9. CLOZARIL [Suspect]
     Dosage: 25 MG
     Route: 048
     Dates: start: 20120329, end: 20120331
  10. CLOZARIL [Suspect]
     Dosage: 50 MG
     Route: 048
     Dates: start: 20120401, end: 20120403

REACTIONS (8)
  - NEUROLEPTIC MALIGNANT SYNDROME [None]
  - BLOOD PRESSURE DECREASED [None]
  - PLEURAL EFFUSION [None]
  - DIARRHOEA [None]
  - CARDIAC FAILURE ACUTE [None]
  - GENERALISED OEDEMA [None]
  - RENAL FAILURE ACUTE [None]
  - PYREXIA [None]
